FAERS Safety Report 18403377 (Version 1)
Quarter: 2020Q4

REPORT INFORMATION
  Report Type: Spontaneous
  Country: US (occurrence: US)
  Receive Date: 20201019
  Receipt Date: 20201019
  Transmission Date: 20210114
  Serious: Yes (Other)
  Sender: FDA-Public Use
  Company Number: None

PATIENT
  Age: 57 Year
  Sex: Female
  Weight: 63.4 kg

DRUGS (10)
  1. BENZONATATE 100 MG [Concomitant]
     Active Substance: BENZONATATE
     Dates: start: 20201012, end: 20201015
  2. DEXAMETHASONE 6 MG INJ [Concomitant]
     Dates: start: 20201012, end: 20201014
  3. MORPHINE INJ 2 MG [Concomitant]
     Dates: start: 20201012, end: 20201015
  4. METOCLOPRAMIDE 10 MG INJ [Concomitant]
     Dates: start: 20201012, end: 20201015
  5. NORCO 10/325 MG [Concomitant]
     Dates: start: 20201012, end: 20201014
  6. REMDESIVIR INJECTION, LYOPHILIZED POWDER [Suspect]
     Active Substance: REMDESIVIR
     Indication: COVID-19
     Dosage: ?          OTHER FREQUENCY:ONCE (LOADING DOSE;?
     Route: 040
     Dates: start: 20201012, end: 20201012
  7. ROBITUSSIN DM 10 ML [Concomitant]
     Dates: start: 20201012, end: 20201015
  8. ACETAMINOPHEN 650 MG [Concomitant]
     Active Substance: ACETAMINOPHEN
     Dates: start: 20201012, end: 20201015
  9. MEROPENEM 1 G [Concomitant]
     Dates: start: 20201012, end: 20201015
  10. OFIRMEV 1000 MG [Concomitant]
     Dates: start: 20201012, end: 20201012

REACTIONS (2)
  - Alanine aminotransferase increased [None]
  - Aspartate aminotransferase increased [None]

NARRATIVE: CASE EVENT DATE: 20201013
